FAERS Safety Report 5030381-X (Version None)
Quarter: 2006Q2

REPORT INFORMATION
  Report Type: 
  Country: None (occurrence: None)
  Receive Date: 20060615
  Receipt Date: 20060530
  Transmission Date: 20061013
  Serious: Yes (Other)
  Sender: FDA-Public Use
  Company Number: 2006BI001996

PATIENT
  Age: 62 Year
  Sex: Female

DRUGS (11)
  1. AVONEX [Suspect]
     Indication: MULTIPLE SCLEROSIS
     Dosage: 30 UG; QW; IM
     Route: 030
  2. METHOTREXATE [Concomitant]
  3. PREDNISONE TAB [Concomitant]
  4. FOLATE [Concomitant]
  5. PLAQUENIL [Concomitant]
  6. FOSAMAX [Concomitant]
  7. CALCIUM GLUCONATE [Concomitant]
  8. CELEBREX [Concomitant]
  9. TEGRETOL [Concomitant]
  10. BACLOFEN [Concomitant]
  11. XANAX [Concomitant]

REACTIONS (1)
  - SARCOIDOSIS [None]
